FAERS Safety Report 7106271-5 (Version None)
Quarter: 2010Q4

REPORT INFORMATION
  Report Type: 
  Country: None (occurrence: None)
  Receive Date: 20101116
  Receipt Date: 20101110
  Transmission Date: 20110411
  Serious: Yes (Other)
  Sender: FDA-Public Use
  Company Number: US-PFIZER INC-2010145170

PATIENT
  Sex: Female
  Weight: 77 kg

DRUGS (5)
  1. LIPITOR [Suspect]
     Indication: BLOOD CHOLESTEROL INCREASED
     Dosage: 40 MG, DAILY
     Route: 048
     Dates: start: 20050101
  2. LISINOPRIL [Concomitant]
     Dosage: UNK, 3X/DAY
  3. NORVASC [Concomitant]
     Dosage: UNK
  4. GABAPENTIN [Concomitant]
     Dosage: UNK
  5. PAROXETINE [Concomitant]
     Dosage: UNK

REACTIONS (4)
  - BLOOD CHOLESTEROL INCREASED [None]
  - DIABETES MELLITUS [None]
  - DRUG INEFFECTIVE [None]
  - URINE ODOUR ABNORMAL [None]
